FAERS Safety Report 11828009 (Version 4)
Quarter: 2019Q2

REPORT INFORMATION
  Report Type: Spontaneous
  Country: GR (occurrence: GR)
  Receive Date: 20151211
  Receipt Date: 20190613
  Transmission Date: 20190711
  Serious: Yes (Hospitalization, Other)
  Sender: FDA-Public Use
  Company Number: GR-009507513-1512GRC001013

PATIENT
  Age: 33 Year
  Sex: Male

DRUGS (8)
  1. MIRTAZAPINE. [Interacting]
     Active Substance: MIRTAZAPINE
     Dosage: 45 MG, QD
     Route: 048
  2. RISPERIDONE. [Interacting]
     Active Substance: RISPERIDONE
     Indication: MAJOR DEPRESSION
     Dosage: 4 MILLIGRAM
     Route: 048
  3. VENLAFAXINE HYDROCHLORIDE. [Concomitant]
     Active Substance: VENLAFAXINE HYDROCHLORIDE
     Indication: MAJOR DEPRESSION
     Dosage: 75 MG/OD
     Route: 048
  4. ALPRAZOLAM. [Interacting]
     Active Substance: ALPRAZOLAM
     Indication: MAJOR DEPRESSION
     Dosage: 0,5 MG/TID-THREE TIMES A DAY
  5. MIRTAZAPINE. [Suspect]
     Active Substance: MIRTAZAPINE
     Indication: MAJOR DEPRESSION
     Dosage: 30 MG/ OD-ONCE A DAY
     Route: 048
  6. RISPERIDONE. [Interacting]
     Active Substance: RISPERIDONE
     Indication: MAJOR DEPRESSION
     Dosage: LOW DOSE, NO MORE THAN 2 MG/DAY AND FOR ABOUT ONE MONTH EACH TIME
     Route: 048
  7. CLOMIPRAMINE HYDROCHLORIDE. [Interacting]
     Active Substance: CLOMIPRAMINE HYDROCHLORIDE
     Indication: SUICIDAL BEHAVIOUR
     Dosage: 10 MG, BID
  8. ALPRAZOLAM. [Interacting]
     Active Substance: ALPRAZOLAM
     Indication: MAJOR DEPRESSION

REACTIONS (2)
  - Drug interaction [Recovered/Resolved]
  - Serotonin syndrome [Recovered/Resolved]
